FAERS Safety Report 6645678-7 (Version None)
Quarter: 2010Q1

REPORT INFORMATION
  Report Type: 
  Country: None (occurrence: None)
  Receive Date: 20100323
  Receipt Date: 20100309
  Transmission Date: 20100710
  Serious: Yes (Hospitalization, Other)
  Sender: FDA-Public Use
  Company Number: US-ELI_LILLY_AND_COMPANY-US201003004168

PATIENT
  Sex: Female

DRUGS (23)
  1. FORTEO [Suspect]
     Indication: OSTEOPOROSIS
     Dosage: 20 UG, DAILY (1/D)
     Dates: start: 20090914, end: 20091201
  2. FORTEO [Suspect]
     Dosage: 20 UG, DAILY (1/D)
     Dates: start: 20091201
  3. ADVAIR DISKUS 100/50 [Concomitant]
  4. ALBUTEROL SULFATE AUTOHALER [Concomitant]
  5. ZITHROMYCIN [Concomitant]
  6. CALTRATE [Concomitant]
  7. CLONAZEPAM [Concomitant]
  8. CYCLOBENZAPRINE [Concomitant]
  9. ESTRADIOL TRANSDERMAL [Concomitant]
  10. FAMOTIDINE [Concomitant]
  11. FEXOFENADINE [Concomitant]
  12. IMODIUM /00384302/ [Concomitant]
  13. LACTAID [Concomitant]
  14. MOBIC [Concomitant]
  15. VITAMINS [Concomitant]
  16. MINERALS NOS [Concomitant]
  17. NASONEX [Concomitant]
  18. PSYLLIUM [Concomitant]
  19. VITAMIN C [Concomitant]
  20. VITAMIN D [Concomitant]
  21. PEPCID [Concomitant]
  22. FLEXERIL [Concomitant]
  23. PLAQUENIL [Concomitant]

REACTIONS (7)
  - ARTHROPATHY [None]
  - ASTHENIA [None]
  - BONE DISORDER [None]
  - JOINT SWELLING [None]
  - LUNG DISORDER [None]
  - LUNG OPERATION [None]
  - MOBILITY DECREASED [None]
